FAERS Safety Report 14668084 (Version 1)
Quarter: 2018Q1

REPORT INFORMATION
  Report Type: Spontaneous
  Country: US (occurrence: US)
  Receive Date: 20180322
  Receipt Date: 20180322
  Transmission Date: 20180509
  Serious: Yes (Life-Threatening, Other)
  Sender: FDA-Public Use
  Company Number: US-TORRENT-00005946

PATIENT
  Age: 56 Year
  Sex: Female

DRUGS (5)
  1. RIFAXIMIN. [Suspect]
     Active Substance: RIFAXIMIN
     Indication: LIVER INJURY
  2. ACETYLCYSTEINE. [Suspect]
     Active Substance: ACETYLCYSTEINE
     Indication: LIVER INJURY
  3. PANTOPRAZOLE [Suspect]
     Active Substance: PANTOPRAZOLE
     Indication: LIVER INJURY
  4. CRIZOTINIB [Concomitant]
     Active Substance: CRIZOTINIB
     Indication: LUNG ADENOCARCINOMA STAGE IV
  5. LACTULOSE. [Suspect]
     Active Substance: LACTULOSE
     Indication: LIVER INJURY

REACTIONS (1)
  - Drug ineffective [Unknown]
